FAERS Safety Report 4779692-3 (Version None)
Quarter: 2005Q3

REPORT INFORMATION
  Report Type: 
  Country: None (occurrence: None)
  Receive Date: 20050923
  Receipt Date: 20050921
  Transmission Date: 20060218
  Serious: Yes (Other)
  Sender: FDA-Public Use
  Company Number: 212320

PATIENT
  Age: 67 Year
  Sex: Male

DRUGS (9)
  1. AVASTIN [Suspect]
     Indication: METASTATIC RENAL CELL CARCINOMA
     Dosage: 10 MG/KG, Q2W, INTRAVENOUS
     Route: 042
     Dates: start: 20050111, end: 20050201
  2. TARCEVA [Concomitant]
  3. ATENOLOL [Concomitant]
  4. FLOMAX [Concomitant]
  5. DITROPAN [Concomitant]
  6. CALCIUM (CALCIUM NOS) [Concomitant]
  7. IRON (IRON NOS) [Concomitant]
  8. MULTIVITAMIN (MULTIVITAMINS NOS) [Concomitant]
  9. ZOMETA [Concomitant]

REACTIONS (9)
  - CHILLS [None]
  - CONFUSIONAL STATE [None]
  - DIARRHOEA [None]
  - ENDOCARDITIS [None]
  - INFARCTION [None]
  - RASH PRURITIC [None]
  - SPEECH DISORDER [None]
  - SPLINTER HAEMORRHAGES [None]
  - VASCULITIS [None]
